FAERS Safety Report 19206475 (Version 4)
Quarter: 2021Q2

REPORT INFORMATION
  Report Type: Report from Study
  Country: None (occurrence: US)
  Receive Date: 20210503
  Receipt Date: 20210621
  Transmission Date: 20210717
  Serious: Yes (Hospitalization, Other)
  Sender: FDA-Public Use
  Company Number: US-ABBVIE-21K-163-3884925-00

PATIENT
  Age: 77 Year
  Sex: Female
  Weight: 87.62 kg

DRUGS (4)
  1. COVID?19 VACCINE [Concomitant]
     Indication: COVID-19 IMMUNISATION
     Dosage: MODERNA
     Route: 030
     Dates: start: 20210203, end: 20210203
  2. COVID?19 VACCINE [Concomitant]
     Dosage: MODERNA
     Route: 030
     Dates: start: 20210303, end: 20210303
  3. BENAZEPRIL [Concomitant]
     Active Substance: BENAZEPRIL HYDROCHLORIDE
     Indication: HYPERTENSION
  4. SKYRIZI [Suspect]
     Active Substance: RISANKIZUMAB-RZAA
     Indication: PSORIASIS
     Dosage: START DATE ?THREE OR MORE YEARS
     Route: 058
     Dates: start: 2019

REACTIONS (16)
  - Cellulitis [Not Recovered/Not Resolved]
  - Adverse food reaction [Unknown]
  - Asthenia [Recovered/Resolved]
  - Illness [Recovered/Resolved]
  - Diarrhoea [Not Recovered/Not Resolved]
  - Escherichia infection [Unknown]
  - Drug hypersensitivity [Recovered/Resolved]
  - Loss of consciousness [Recovered/Resolved]
  - Ankle fracture [Recovering/Resolving]
  - Food contamination [Unknown]
  - Food poisoning [Recovered/Resolved]
  - Vomiting [Recovered/Resolved]
  - Norovirus infection [Recovered/Resolved]
  - Contusion [Recovering/Resolving]
  - Dehydration [Recovered/Resolved]
  - Ligament sprain [Recovering/Resolving]

NARRATIVE: CASE EVENT DATE: 20210416
